FAERS Safety Report 10102469 (Version 2)
Quarter: 2014Q2

REPORT INFORMATION
  Report Type: Other
  Country: US (occurrence: US)
  Receive Date: 20140424
  Receipt Date: 20140618
  Transmission Date: 20141212
  Serious: Yes (Other)
  Sender: FDA-Public Use
  Company Number: US-GSKPPD-2014GSK000270

PATIENT
  Sex: Male

DRUGS (4)
  1. AVANDIA [Suspect]
     Indication: DIABETES MELLITUS
     Dosage: DATES OF AVANDIA USE COULD NOT BE CONFIRMED IN RECORDS REVIEWED.
     Route: 048
  2. ASPIRIN [Concomitant]
  3. COREG [Concomitant]
  4. LISINOPRIL/HYDROCHLOROTHIAZIDE [Concomitant]
     Dosage: 20/25MG

REACTIONS (1)
  - Cerebrovascular accident [None]
